FAERS Safety Report 9500045 (Version 2)
Quarter: 2013Q4

REPORT INFORMATION
  Report Type: Spontaneous
  Country: FR (occurrence: FR)
  Receive Date: 20130905
  Receipt Date: 20131003
  Transmission Date: 20140711
  Serious: Yes (Hospitalization, Other)
  Sender: FDA-Public Use
  Company Number: FR-ROCHE-1270238

PATIENT
  Sex: Male

DRUGS (2)
  1. XOLAIR [Suspect]
     Indication: ASTHMA
     Route: 058
     Dates: start: 20090311, end: 20130830
  2. XOLAIR [Suspect]
     Route: 058
     Dates: start: 20130830, end: 20130830

REACTIONS (1)
  - Coronary artery stenosis [Recovering/Resolving]
